FAERS Safety Report 5322625-1 (Version None)
Quarter: 2007Q2

REPORT INFORMATION
  Report Type: 
  Country: None (occurrence: None)
  Receive Date: 20070511
  Receipt Date: 20070501
  Transmission Date: 20071010
  Serious: Yes (Other)
  Sender: FDA-Public Use
  Company Number: HQWYE945502MAY07

PATIENT
  Sex: Male
  Weight: 99.88 kg

DRUGS (1)
  1. EFFEXOR XR [Suspect]
     Indication: DEPRESSION
     Dosage: 75 MG FREQUENCY UNSPECIFIED
     Dates: start: 20050101, end: 20060101

REACTIONS (4)
  - DRUG WITHDRAWAL SYNDROME [None]
  - INTENTIONAL DRUG MISUSE [None]
  - MAJOR DEPRESSION [None]
  - SUICIDE ATTEMPT [None]
